FAERS Safety Report 24391807 (Version 1)
Quarter: 2024Q4

REPORT INFORMATION
  Report Type: Spontaneous
  Country: US (occurrence: None)
  Receive Date: 20241002
  Receipt Date: 20241002
  Transmission Date: 20250115
  Serious: Yes (Disabling)
  Sender: Public
  Company Number: None

PATIENT
  Age: 49 Year
  Sex: Female
  Weight: 69.75 kg

DRUGS (13)
  1. LOSARTAN POTASSIUM [Suspect]
     Active Substance: LOSARTAN POTASSIUM
     Indication: Blood pressure increased
     Dosage: OTHER QUANTITY : 90 TABLET(S);?
     Route: 048
     Dates: start: 20240501, end: 20240917
  2. METOPROLOL [Concomitant]
     Active Substance: METOPROLOL
  3. SINGULAIR [Concomitant]
     Active Substance: MONTELUKAST SODIUM
  4. LISINOPRIL [Concomitant]
     Active Substance: LISINOPRIL
  5. Escitalaprolam [Concomitant]
  6. SUMATRIPTAN [Concomitant]
     Active Substance: SUMATRIPTAN
  7. POTASSIUM CHLORIDE [Concomitant]
     Active Substance: POTASSIUM CHLORIDE
  8. LORAZEPAM [Concomitant]
     Active Substance: LORAZEPAM
  9. MAGNESIUM [Concomitant]
     Active Substance: MAGNESIUM
  10. VITAMIN D [Concomitant]
     Active Substance: VITAMIN D NOS
  11. ASPIRIN [Concomitant]
     Active Substance: ASPIRIN
  12. OMEGA-3 FATTY ACIDS [Concomitant]
     Active Substance: OMEGA-3 FATTY ACIDS
  13. VITAMINS [Concomitant]
     Active Substance: VITAMINS

REACTIONS (10)
  - Anxiety [None]
  - Stress [None]
  - Panic attack [None]
  - Palpitations [None]
  - Asthenia [None]
  - Feeling hot [None]
  - Flushing [None]
  - Dyspnoea [None]
  - Chest pain [None]
  - Impaired work ability [None]

NARRATIVE: CASE EVENT DATE: 20240802
